FAERS Safety Report 5209778-0 (Version None)
Quarter: 2006Q4

REPORT INFORMATION
  Report Type: 
  Country: None (occurrence: None)
  Receive Date: 20061107
  Receipt Date: 20060808
  Transmission Date: 20070319
  Serious: No
  Sender: FDA-Public Use
  Company Number: IPX00003

PATIENT
  Age: 9 Year
  Sex: Female
  Weight: 17 kg

DRUGS (1)
  1. IPLEX [Suspect]
     Indication: GROWTH HORMONE DEFICIENCY
     Dosage: 8.5 MG/DAILY/SC
     Route: 058
     Dates: start: 20060715

REACTIONS (2)
  - CULTURE THROAT POSITIVE [None]
  - URINARY TRACT INFECTION [None]
